FAERS Safety Report 9865863 (Version 2)
Quarter: 2014Q1

REPORT INFORMATION
  Report Type: Spontaneous
  Country: US (occurrence: US)
  Receive Date: 20140203
  Receipt Date: 20140203
  Transmission Date: 20141002
  Serious: No
  Sender: FDA-Public Use
  Company Number: US-ALLERGAN-1311772US

PATIENT
  Age: 70 Year
  Sex: Male

DRUGS (10)
  1. RESTASIS [Suspect]
     Indication: DRY EYE
     Dosage: 2 UNK, UNK
     Route: 047
  2. ZILEX [Concomitant]
     Indication: PRODUCT USED FOR UNKNOWN INDICATION
     Route: 047
  3. NEXIUM                             /01479302/ [Concomitant]
     Indication: PRODUCT USED FOR UNKNOWN INDICATION
  4. GENERIC FOR FLOMAX [Concomitant]
     Indication: PRODUCT USED FOR UNKNOWN INDICATION
  5. BENICAR [Concomitant]
     Indication: PRODUCT USED FOR UNKNOWN INDICATION
  6. AVODART [Concomitant]
     Indication: PRODUCT USED FOR UNKNOWN INDICATION
  7. SIMVASTATIN [Concomitant]
     Indication: PRODUCT USED FOR UNKNOWN INDICATION
  8. POTASSIUM CHLORIDE [Concomitant]
     Indication: PRODUCT USED FOR UNKNOWN INDICATION
  9. HYDROCHLOROTHIAZIDE [Concomitant]
  10. TAMSULOXIN [Concomitant]
     Indication: PRODUCT USED FOR UNKNOWN INDICATION

REACTIONS (1)
  - Eye irritation [Unknown]
